FAERS Safety Report 22177063 (Version 1)
Quarter: 2023Q2

REPORT INFORMATION
  Report Type: Spontaneous
  Country: US (occurrence: None)
  Receive Date: 20230403
  Receipt Date: 20230403
  Transmission Date: 20230721
  Serious: No
  Sender: FDA-Public Use
  Company Number: None

PATIENT
  Age: 40 Year
  Sex: Female
  Weight: 72.57 kg

DRUGS (5)
  1. ARIPIPRAZOLE [Suspect]
     Active Substance: ARIPIPRAZOLE
  2. CITALOPRAM [Suspect]
     Active Substance: CITALOPRAM HYDROBROMIDE
  3. LAMOTRIGINE [Suspect]
     Active Substance: LAMOTRIGINE
  4. FOLATE SODIUM [Concomitant]
     Active Substance: FOLATE SODIUM
  5. METFORMIN [Concomitant]
     Active Substance: METFORMIN HYDROCHLORIDE

REACTIONS (3)
  - Gestational diabetes [None]
  - Postpartum haemorrhage [None]
  - Exposure during pregnancy [None]

NARRATIVE: CASE EVENT DATE: 20211117
